FAERS Safety Report 5335796-8 (Version None)
Quarter: 2007Q2

REPORT INFORMATION
  Report Type: 
  Country: None (occurrence: None)
  Receive Date: 20070322
  Receipt Date: 20061103
  Transmission Date: 20071010
  Serious: Yes (Hospitalization)
  Sender: FDA-Public Use
  Company Number: US-CVT-062153

PATIENT
  Age: 61 Year
  Sex: Male
  Weight: 103.9 kg

DRUGS (8)
  1. RANEXA [Suspect]
     Indication: ANGINA PECTORIS
     Dosage: 500 MG, BID, ORAL
     Route: 048
     Dates: start: 20061012, end: 20061021
  2. LIPITOR/01326101/ (ATORVASTATIN) [Concomitant]
  3. ALTACE [Concomitant]
  4. IMDUR [Concomitant]
  5. PLAVIX [Concomitant]
  6. COUMADIN [Concomitant]
  7. BETAPACE [Concomitant]
  8. CARDIZEM [Concomitant]

REACTIONS (1)
  - ATRIAL FLUTTER [None]
